FAERS Safety Report 25705669 (Version 1)
Quarter: 2025Q3

REPORT INFORMATION
  Report Type: Spontaneous
  Country: CN (occurrence: CN)
  Receive Date: 20250820
  Receipt Date: 20250820
  Transmission Date: 20251021
  Serious: Yes (Hospitalization, Other)
  Sender: NOVARTIS
  Company Number: CN-002147023-NVSC2025CN128621

PATIENT
  Age: 83 Year
  Sex: Male

DRUGS (5)
  1. VALSARTAN [Suspect]
     Active Substance: VALSARTAN
     Indication: Hypertension
     Dosage: 80 MG, QD
     Route: 048
     Dates: start: 20250620, end: 20250709
  2. SODIUM CHLORIDE [Suspect]
     Active Substance: SODIUM CHLORIDE
     Indication: Product used for unknown indication
     Dosage: 250 ML, QD
     Route: 041
     Dates: start: 20250704, end: 20250710
  3. ATORVASTATIN CALCIUM [Suspect]
     Active Substance: ATORVASTATIN CALCIUM
     Indication: Carotid artery stenosis
     Route: 048
     Dates: start: 20250620, end: 20250709
  4. EDARAVONE [Concomitant]
     Active Substance: EDARAVONE
     Indication: Oxidative stress
     Dosage: 30 MG, BID
     Route: 041
     Dates: start: 20250704, end: 20250714
  5. SODIUM CHLORIDE [Concomitant]
     Active Substance: SODIUM CHLORIDE
     Indication: Product used for unknown indication
     Dosage: 100 ML, BID
     Route: 041
     Dates: start: 20250704, end: 20250714

REACTIONS (3)
  - Hepatic failure [Unknown]
  - Hepatic function abnormal [Recovering/Resolving]
  - Confusional state [Unknown]

NARRATIVE: CASE EVENT DATE: 20250704
